FAERS Safety Report 19748712 (Version 2)
Quarter: 2021Q4

REPORT INFORMATION
  Report Type: Spontaneous
  Country: US (occurrence: US)
  Receive Date: 20210826
  Receipt Date: 20211019
  Transmission Date: 20220303
  Serious: No
  Sender: FDA-Public Use
  Company Number: US-PHARMING-PHAUS2021000418

PATIENT

DRUGS (11)
  1. RUCONEST [Suspect]
     Active Substance: HUMAN C1-ESTERASE INHIBITOR
     Indication: Hereditary angioedema
     Dosage: 4200 IU, AS NEEDED
     Route: 042
     Dates: start: 20210806
  2. TAKHZYRO [Concomitant]
     Active Substance: LANADELUMAB-FLYO
     Indication: Product used for unknown indication
  3. ICATIBANT ACETATE [Concomitant]
     Active Substance: ICATIBANT ACETATE
     Indication: Product used for unknown indication
  4. EPINEPHRINE [Concomitant]
     Active Substance: EPINEPHRINE
     Indication: Product used for unknown indication
  5. HYDROCHLOROTHIAZIDE [Concomitant]
     Active Substance: HYDROCHLOROTHIAZIDE
     Indication: Product used for unknown indication
  6. DANAZOL [Concomitant]
     Active Substance: DANAZOL
     Indication: Product used for unknown indication
  7. PREDNISONE [Concomitant]
     Active Substance: PREDNISONE
     Indication: Product used for unknown indication
  8. DILTIAZEM [Concomitant]
     Active Substance: DILTIAZEM
     Indication: Product used for unknown indication
  9. IBUPROFEN [Concomitant]
     Active Substance: IBUPROFEN
     Indication: Product used for unknown indication
  10. CETIRIZINE [Concomitant]
     Active Substance: CETIRIZINE HYDROCHLORIDE
     Indication: Product used for unknown indication
  11. CEFDINIR [Concomitant]
     Active Substance: CEFDINIR
     Indication: Product used for unknown indication

REACTIONS (2)
  - Muscle spasms [Unknown]
  - Headache [Unknown]
